FAERS Safety Report 6238245-0 (Version None)
Quarter: 2009Q2

REPORT INFORMATION
  Report Type: 
  Country: None (occurrence: None)
  Receive Date: 20090618
  Receipt Date: 20090601
  Transmission Date: 20091009
  Serious: Yes (Other)
  Sender: FDA-Public Use
  Company Number: 20090206

PATIENT
  Sex: Female

DRUGS (3)
  1. ASCORBIC ACID [Suspect]
     Indication: MULTIPLE MYELOMA
     Dates: start: 20090111
  2. TRISENOX [Suspect]
     Indication: MULTIPLE MYELOMA
     Dosage: INTRAVENOUS DRIP
     Route: 041
     Dates: start: 20070111
  3. VELCADE [Suspect]
     Indication: MULTIPLE MYELOMA

REACTIONS (21)
  - ANAEMIA [None]
  - ARTHRALGIA [None]
  - ASTHENIA [None]
  - BLOOD POTASSIUM DECREASED [None]
  - CONTUSION [None]
  - DIARRHOEA [None]
  - DYSPNOEA [None]
  - FALL [None]
  - FATIGUE [None]
  - FOOT FRACTURE [None]
  - HUMERUS FRACTURE [None]
  - HYPERMAGNESAEMIA [None]
  - MALAISE [None]
  - MUSCULOSKELETAL PAIN [None]
  - NAUSEA [None]
  - NEUTROPENIA [None]
  - PAIN IN EXTREMITY [None]
  - RASH [None]
  - SKIN EXFOLIATION [None]
  - THROMBOCYTOPENIA [None]
  - WEIGHT INCREASED [None]
